FAERS Safety Report 16582807 (Version 1)
Quarter: 2019Q3

REPORT INFORMATION
  Report Type: Spontaneous
  Country: FR (occurrence: FR)
  Receive Date: 20190717
  Receipt Date: 20190717
  Transmission Date: 20191004
  Serious: Yes (Hospitalization, Other)
  Sender: FDA-Public Use
  Company Number: FR-BRISTOL-MYERS SQUIBB COMPANY-BMS-2019-066433

PATIENT
  Age: 72 Year
  Sex: Male
  Weight: 74 kg

DRUGS (1)
  1. OPDIVO [Suspect]
     Active Substance: NIVOLUMAB
     Indication: BRONCHIAL CARCINOMA
     Route: 042
     Dates: start: 20150611, end: 20161014

REACTIONS (3)
  - Troponin increased [Recovered/Resolved]
  - Myocarditis [Recovering/Resolving]
  - Intentional underdose [Unknown]

NARRATIVE: CASE EVENT DATE: 20190114
